FAERS Safety Report 5735966-0 (Version None)
Quarter: 2008Q2

REPORT INFORMATION
  Report Type: 
  Country: None (occurrence: None)
  Receive Date: 20080513
  Receipt Date: 20080507
  Transmission Date: 20081010
  Serious: Yes (Other)
  Sender: FDA-Public Use
  Company Number: PHBS2008DE03264

PATIENT
  Age: 62 Year

DRUGS (3)
  1. COMTAN [Suspect]
     Indication: PARKINSON'S DISEASE
     Dosage: 1 DF, TID
     Route: 048
     Dates: start: 20071116
  2. REQUIP [Concomitant]
     Indication: PARKINSON'S DISEASE
     Dosage: 24 MG/D
     Route: 048
     Dates: start: 20070801
  3. MADOPAR [Concomitant]
     Indication: PARKINSON'S DISEASE
     Dosage: 125 MG, TID
     Route: 048
     Dates: start: 20070801

REACTIONS (1)
  - NEUROPATHY PERIPHERAL [None]
